FAERS Safety Report 7715952-1 (Version None)
Quarter: 2011Q3

REPORT INFORMATION
  Report Type: 
  Country: None (occurrence: None)
  Receive Date: 20110829
  Receipt Date: 20110816
  Transmission Date: 20111222
  Serious: Yes (Hospitalization, Other)
  Sender: FDA-Public Use
  Company Number: ES-ELI_LILLY_AND_COMPANY-ES201108005158

PATIENT
  Sex: Female
  Weight: 88 kg

DRUGS (11)
  1. PRAVASTATIN [Concomitant]
     Indication: HYPERCHOLESTEROLAEMIA
     Dosage: 1 DF, QD
     Route: 048
  2. MORPHINE SULFATE [Concomitant]
     Indication: PAIN
     Dosage: 3 DF, QD
     Route: 048
  3. ALDACTONE [Concomitant]
     Indication: HYPERTENSION
     Dosage: 1 DF, QD
     Route: 048
  4. FUROSEMIDE [Concomitant]
     Dosage: 1.5 DF, QD
     Route: 048
  5. FORTEO [Suspect]
     Indication: OSTEOPOROSIS
     Dosage: 20 UG, QD
     Route: 058
     Dates: start: 20110124, end: 20110704
  6. PAROXETINA [Concomitant]
     Indication: DEPRESSION
     Dosage: 1 DF, QD
     Route: 048
  7. ENALAPRIL MALEATE [Concomitant]
     Indication: HYPERTENSION
     Dosage: 1 DF, BID
     Route: 048
  8. OMEPRAZOLE [Concomitant]
     Indication: GASTRIC DISORDER
     Dosage: 1 DF, QD
     Route: 048
  9. BISOPROLOL FUMARATE [Concomitant]
     Indication: ARRHYTHMIA
     Dosage: 1 DF, BID
     Route: 048
  10. LORAZEPAM [Concomitant]
     Indication: RESTLESSNESS
     Dosage: 1 DF, QD
     Route: 048
  11. SINTROM [Concomitant]
     Indication: ARRHYTHMIA
     Dosage: UNK
     Route: 048

REACTIONS (4)
  - SPLENIC INFECTION BACTERIAL [None]
  - KIDNEY INFECTION [None]
  - TOOTH EXTRACTION [None]
  - INFECTIVE THROMBOSIS [None]
